FAERS Safety Report 5355217-9 (Version None)
Quarter: 2007Q2

REPORT INFORMATION
  Report Type: 
  Country: None (occurrence: None)
  Receive Date: 20070522
  Receipt Date: 20070420
  Transmission Date: 20071010
  Serious: Yes (Other)
  Sender: FDA-Public Use
  Company Number: 2007SP007514

PATIENT
  Age: 51 Year
  Sex: Female

DRUGS (4)
  1. NOXAFIL [Suspect]
     Indication: DRUG USE FOR UNKNOWN INDICATION
     Dosage: PO
     Route: 048
  2. THALIDOMIDE [Concomitant]
  3. DEXAMETHASONE 0.5MG TAB [Concomitant]
  4. MELPHALAN [Concomitant]

REACTIONS (1)
  - HEPATITIS ACUTE [None]
